FAERS Safety Report 14320462 (Version 3)
Quarter: 2018Q2

REPORT INFORMATION
  Report Type: Report from Study
  Country: US (occurrence: US)
  Receive Date: 20171222
  Receipt Date: 20180601
  Transmission Date: 20180711
  Serious: Yes (Hospitalization)
  Sender: FDA-Public Use
  Company Number: US-ACTELION-A-NJ2017-153158

PATIENT
  Age: 62 Year
  Sex: Male
  Weight: 108.84 kg

DRUGS (5)
  1. ANESTOL [Concomitant]
     Dosage: 24/26 MG BID
  2. OPSUMIT [Suspect]
     Active Substance: MACITENTAN
     Indication: PULMONARY ARTERIAL HYPERTENSION
     Dosage: 10 MG, QD
     Route: 048
     Dates: end: 201802
  3. ADEMPAS [Concomitant]
     Active Substance: RIOCIGUAT
  4. WARFARIN [Concomitant]
     Active Substance: WARFARIN
  5. COUMADIN [Concomitant]
     Active Substance: WARFARIN SODIUM

REACTIONS (6)
  - Diarrhoea [Recovered/Resolved]
  - Dyspnoea exertional [Unknown]
  - Fluid retention [Unknown]
  - Testicular oedema [Unknown]
  - Oedema peripheral [Unknown]
  - Bacterial infection [Unknown]
